FAERS Safety Report 4495594-4 (Version None)
Quarter: 2004Q4

REPORT INFORMATION
  Report Type: 
  Country: None (occurrence: None)
  Receive Date: 20041108
  Receipt Date: 20041021
  Transmission Date: 20050328
  Serious: Yes (Hospitalization)
  Sender: FDA-Public Use
  Company Number: CA-BRISTOL-MYERS SQUIBB COMPANY-12740148

PATIENT
  Sex: Male
  Weight: 84 kg

DRUGS (2)
  1. GLUCOPHAGE [Suspect]
     Indication: DIABETES MELLITUS
     Dosage: DURATION OF THERAPY: ^FEW YEARS^
     Route: 048
  2. ZOCOR [Concomitant]

REACTIONS (1)
  - NEPHROLITHIASIS [None]
